FAERS Safety Report 5207060-9 (Version None)
Quarter: 2007Q1

REPORT INFORMATION
  Report Type: 
  Country: None (occurrence: None)
  Receive Date: 20070112
  Receipt Date: 20070104
  Transmission Date: 20070707
  Serious: Yes (Hospitalization)
  Sender: FDA-Public Use
  Company Number: US-JNJFOC-20070100906

PATIENT
  Sex: Male

DRUGS (17)
  1. PREZISTA [Suspect]
     Indication: HIV INFECTION
     Route: 048
  2. GS 9137 [Suspect]
     Route: 048
  3. GS 9137 [Suspect]
     Indication: HIV INFECTION
     Route: 048
  4. RITONAVIR [Suspect]
     Indication: HIV INFECTION
     Route: 048
  5. VIREAD [Concomitant]
     Indication: HIV INFECTION
     Route: 065
  6. T-20 [Concomitant]
     Indication: HIV INFECTION
     Route: 065
  7. TRIZIVIR [Concomitant]
     Indication: HIV INFECTION
     Route: 065
  8. TIPRANAVIR [Concomitant]
     Indication: HIV INFECTION
     Route: 065
  9. PAROXETINE HCL [Concomitant]
     Indication: DEPRESSION
     Route: 065
  10. RANITIDINE [Concomitant]
     Indication: GASTROOESOPHAGEAL REFLUX DISEASE
     Route: 065
  11. SEROQUEL [Concomitant]
     Indication: INSOMNIA
     Route: 065
  12. ACYCLOVIR [Concomitant]
     Indication: HERPES VIRUS INFECTION
     Route: 065
  13. AZITHROMYCIN [Concomitant]
     Indication: INFECTION
     Route: 065
  14. TESTOSTERONE [Concomitant]
     Indication: HYPOGONADISM
     Route: 062
  15. FLUCONAZOLE [Concomitant]
     Indication: INFECTION
     Route: 065
  16. DURAGESIC-100 [Concomitant]
     Indication: PAIN
     Route: 065
  17. SEPTRA [Concomitant]
     Indication: ANTIFUNGAL PROPHYLAXIS
     Route: 065

REACTIONS (2)
  - IMMUNE RECONSTITUTION SYNDROME [None]
  - OSTEOMYELITIS [None]
